FAERS Safety Report 6060123-0 (Version None)
Quarter: 2009Q1

REPORT INFORMATION
  Report Type: 
  Country: None (occurrence: None)
  Receive Date: 20090128
  Receipt Date: 20090113
  Transmission Date: 20090719
  Serious: Yes (Hospitalization)
  Sender: FDA-Public Use
  Company Number: 2009S1000716

PATIENT
  Age: 67 Year
  Sex: Female

DRUGS (2)
  1. FUROSEMIDE (FUROSEMIDE) [Suspect]
     Indication: OEDEMA
     Dosage: 40 MG; DAILY; ORAL
     Route: 048
     Dates: end: 20081008
  2. SPIRONOLACTONE [Concomitant]

REACTIONS (1)
  - PRESYNCOPE [None]
